FAERS Safety Report 10173144 (Version 1)
Quarter: 2014Q2

REPORT INFORMATION
  Report Type: Spontaneous
  Country: US (occurrence: None)
  Receive Date: 20140514
  Receipt Date: 20140514
  Transmission Date: 20141212
  Serious: Yes (Other)
  Sender: FDA-Public Use
  Company Number: None

PATIENT
  Age: 60 Year
  Sex: Female

DRUGS (6)
  1. ARIMIDEX [Suspect]
     Indication: BREAST CANCER
     Route: 048
     Dates: start: 20140414, end: 20140428
  2. TUMS [Concomitant]
  3. HCTZ [Concomitant]
  4. SYNTHROID [Concomitant]
  5. MAGNESIUM [Concomitant]
  6. VITAMIN D3 [Concomitant]

REACTIONS (4)
  - Arthralgia [None]
  - Pain in extremity [None]
  - Pain in extremity [None]
  - Pain in extremity [None]
